FAERS Safety Report 8370933-2 (Version None)
Quarter: 2012Q2

REPORT INFORMATION
  Report Type: 
  Country: None (occurrence: None)
  Receive Date: 20120517
  Receipt Date: 20120124
  Transmission Date: 20120825
  Serious: No
  Sender: FDA-Public Use
  Company Number: USA/USA/12/0022809

PATIENT
  Age: 68 Year
  Sex: Female
  Weight: 84.369 kg

DRUGS (14)
  1. RANITIDINE [Suspect]
     Indication: FOOD INTOLERANCE
     Dosage: 75 MG, ONCE, ORAL
     Route: 048
     Dates: start: 20120124
  2. ASPIRIN [Concomitant]
  3. ATENOLOL [Concomitant]
  4. VITAMIN E [Concomitant]
  5. ASCORBIC ACID [Concomitant]
  6. RANITIDINE [Suspect]
     Indication: FOOD INTOLERANCE
     Dosage: 150 MG, 1 IN 1 D, ORAL
     Route: 048
  7. LANOXIN [Concomitant]
  8. LOTREL (AMLODIPINE BESYLATE E/BENAZEPRIL HYDROCHLOR.) [Concomitant]
  9. NITROSTAT [Concomitant]
  10. METFROMIN (METFORMIN) [Concomitant]
  11. TRAZODONE HCL [Concomitant]
  12. PREMARIN (ESTOGRENS CONJUGATED) [Concomitant]
  13. FISH OIL (FISH OIL) [Concomitant]
  14. LASIX [Concomitant]

REACTIONS (3)
  - DRUG DISPENSING ERROR [None]
  - PRODUCT PACKAGING QUANTITY ISSUE [None]
  - PRODUCT SIZE ISSUE [None]
